FAERS Safety Report 5547208-X (Version None)
Quarter: 2007Q4

REPORT INFORMATION
  Report Type: 
  Country: None (occurrence: None)
  Receive Date: 20071128
  Receipt Date: 20061206
  Transmission Date: 20080405
  Serious: Yes (Other)
  Sender: FDA-Public Use
  Company Number: 2006150674

PATIENT
  Age: 69 Year
  Sex: Female

DRUGS (7)
  1. LIPITOR [Suspect]
     Indication: BLOOD CHOLESTEROL INCREASED
     Dosage: 10 MG (10 MG, DAY)
     Dates: end: 20061101
  2. LYRICA [Suspect]
     Indication: FIBROMYALGIA
     Dosage: 150 MG ( 50 MG, 3 IN 1 D)
     Dates: start: 20061030
  3. KLONOPIN [Concomitant]
  4. CLIMARA [Concomitant]
  5. TRAZODONE HCL [Concomitant]
  6. LOTREL [Concomitant]
  7. CHOLESTEROL (CHOLESTEROL) [Concomitant]

REACTIONS (7)
  - CYSTITIS [None]
  - DRUG INEFFECTIVE [None]
  - FIBROMYALGIA [None]
  - HERPES ZOSTER [None]
  - SOMNOLENCE [None]
  - SWELLING [None]
  - WEIGHT INCREASED [None]
